FAERS Safety Report 9645325 (Version 1)
Quarter: 2013Q4

REPORT INFORMATION
  Report Type: Spontaneous
  Country: US (occurrence: None)
  Receive Date: 20131023
  Receipt Date: 20131023
  Transmission Date: 20140711
  Serious: Yes (Death, Hospitalization)
  Sender: FDA-Public Use
  Company Number: 2013-US-001890

PATIENT
  Age: 52 Year
  Sex: Male

DRUGS (1)
  1. CLOZAPINE USP, ODT (CLOZAPINE, USP)TABLET, MG [Suspect]
     Indication: SCHIZOPHRENIA
     Route: 048
     Dates: start: 20130305

REACTIONS (1)
  - Neoplasm malignant [None]
